FAERS Safety Report 12346915 (Version 1)
Quarter: 2016Q2

REPORT INFORMATION
  Report Type: Spontaneous
  Country: US (occurrence: US)
  Receive Date: 20160509
  Receipt Date: 20160509
  Transmission Date: 20160815
  Serious: No
  Sender: FDA-Public Use
  Company Number: PHEH2015US011303

PATIENT
  Age: 60 Year
  Sex: Male

DRUGS (5)
  1. GLEEVEC [Suspect]
     Active Substance: IMATINIB MESYLATE
     Indication: GASTROINTESTINAL STROMAL TUMOUR
     Dosage: 400 MG, QD
     Route: 048
     Dates: start: 20141201
  2. FLOVENT [Concomitant]
     Active Substance: FLUTICASONE PROPIONATE
     Indication: ASTHMA
     Route: 065
  3. GLEEVEC [Suspect]
     Active Substance: IMATINIB MESYLATE
     Dosage: UNK
     Route: 065
  4. SYMBICOCT [Concomitant]
     Indication: ASTHMA
     Route: 065
  5. ANAPRIL [Concomitant]
     Active Substance: ENALAPRIL MALEATE
     Indication: ASTHMA
     Route: 065

REACTIONS (5)
  - Muscle spasms [Recovered/Resolved]
  - Pharyngitis [Recovered/Resolved]
  - Dysphonia [Recovered/Resolved]
  - Wrong technique in product usage process [Unknown]
  - Fatigue [Recovered/Resolved]

NARRATIVE: CASE EVENT DATE: 20150210
